FAERS Safety Report 14155136 (Version 6)
Quarter: 2018Q1

REPORT INFORMATION
  Report Type: Other
  Country: GB (occurrence: GB)
  Receive Date: 20171103
  Receipt Date: 20180319
  Transmission Date: 20180508
  Serious: Yes (Other)
  Sender: FDA-Public Use
  Company Number: GB-VELOXIS PHARMACEUTICALS-2033159

PATIENT
  Age: 55 Year
  Sex: Female

DRUGS (4)
  1. ENVARSUS XR [Suspect]
     Active Substance: TACROLIMUS
     Indication: IMMUNOSUPPRESSANT DRUG THERAPY
  2. MYCOPHENOLATE MOFETIL. [Suspect]
     Active Substance: MYCOPHENOLATE MOFETIL
  3. MYFORTIC [Suspect]
     Active Substance: MYCOPHENOLATE SODIUM
  4. SIROLIMUS. [Suspect]
     Active Substance: SIROLIMUS

REACTIONS (4)
  - Thrombotic microangiopathy [Unknown]
  - Lymphocele [Recovered/Resolved]
  - Neutropenia [Unknown]
  - Diarrhoea [Unknown]
